FAERS Safety Report 8870078 (Version 1)
Quarter: 2012Q4

REPORT INFORMATION
  Report Type: 
  Country: US (occurrence: US)
  Receive Date: 20121028
  Receipt Date: 20121028
  Transmission Date: 20130627
  Serious: No
  Sender: FDA-Public Use
  Company Number: US-009507513-1209USA001401

PATIENT
  Age: 60 None
  Sex: Male
  Weight: 78.5 kg

DRUGS (3)
  1. PEGINTRON [Suspect]
     Dosage: 120 Microgram, qw (120mcg/0.5ml)
     Route: 058
  2. VICTRELIS [Suspect]
     Dosage: 4 mg, tid
     Route: 048
     Dates: start: 20120320
  3. RIBAVIRIN [Suspect]
     Dosage: 200 mg, UNK

REACTIONS (5)
  - Musculoskeletal pain [Recovering/Resolving]
  - Pain [Unknown]
  - Pain [Unknown]
  - Decreased appetite [Unknown]
  - Product quality issue [Unknown]
